FAERS Safety Report 9325799 (Version 1)
Quarter: 2013Q2

REPORT INFORMATION
  Report Type: Spontaneous
  Country: GB (occurrence: GB)
  Receive Date: 20130604
  Receipt Date: 20130604
  Transmission Date: 20140414
  Serious: Yes (Hospitalization)
  Sender: FDA-Public Use
  Company Number: GB-MYLANLABS-2013S1011237

PATIENT
  Age: 32 Year
  Sex: Male

DRUGS (4)
  1. CLOZAPINE [Suspect]
     Indication: SCHIZOPHRENIA
     Dosage: 700MG
     Route: 065
  2. SCOPOLAMINE BUTYLBROMIDE [Suspect]
     Indication: DIARRHOEA
     Route: 065
  3. LOPERAMIDE [Concomitant]
     Route: 065
  4. DOMPERIDONE [Concomitant]
     Route: 065

REACTIONS (2)
  - Colitis ischaemic [Recovered/Resolved]
  - Necrotising colitis [Recovered/Resolved]
